FAERS Safety Report 11116786 (Version 2)
Quarter: 2015Q3

REPORT INFORMATION
  Report Type: Spontaneous
  Country: US (occurrence: US)
  Receive Date: 20150515
  Receipt Date: 20150928
  Transmission Date: 20151125
  Serious: Yes (Death)
  Sender: FDA-Public Use
  Company Number: US-CTI_01706_2015

PATIENT
  Age: 52 Year
  Sex: Male

DRUGS (2)
  1. BETHKIS [Suspect]
     Active Substance: TOBRAMYCIN
     Indication: CYSTIC FIBROSIS
     Dosage: 300 MG/4 ML, BID
     Route: 055
     Dates: start: 20141204, end: 20150104
  2. PULMOZYME [Concomitant]
     Active Substance: DORNASE ALFA
     Indication: CYSTIC FIBROSIS
     Dosage: VIAL
     Dates: start: 20141205

REACTIONS (1)
  - Death [Fatal]

NARRATIVE: CASE EVENT DATE: 20150119
